FAERS Safety Report 24074258 (Version 2)
Quarter: 2024Q3

REPORT INFORMATION
  Report Type: Spontaneous
  Country: US (occurrence: US)
  Receive Date: 20240710
  Receipt Date: 20240930
  Transmission Date: 20241017
  Serious: No
  Sender: PAREXEL
  Company Number: US-Coherus Biosciences, Inc.-2024-COH-US000442

PATIENT

DRUGS (7)
  1. YUSIMRY [Suspect]
     Active Substance: ADALIMUMAB-AQVH
     Indication: Rheumatoid arthritis
     Dosage: 40 MG, Q2WEEK
     Route: 058
     Dates: start: 20240321
  2. YUSIMRY [Suspect]
     Active Substance: ADALIMUMAB-AQVH
     Dosage: 40 MG, Q2WEEK
     Route: 058
     Dates: start: 20240419
  3. YUSIMRY [Suspect]
     Active Substance: ADALIMUMAB-AQVH
     Dosage: 40 MG, Q2WEEK
     Route: 058
     Dates: start: 20240503
  4. YUSIMRY [Suspect]
     Active Substance: ADALIMUMAB-AQVH
     Dosage: 40 MG, Q2WEEK
     Route: 058
     Dates: start: 20240517
  5. LEFLUNOMIDE [Concomitant]
     Active Substance: LEFLUNOMIDE
  6. HYDROXYCHLOROQUINE [Concomitant]
     Active Substance: HYDROXYCHLOROQUINE
  7. HYDROCHLOROTHIAZIDE [Concomitant]
     Active Substance: HYDROCHLOROTHIAZIDE

REACTIONS (3)
  - Device malfunction [Unknown]
  - Accidental exposure to product [Unknown]
  - Product dose omission issue [Unknown]

NARRATIVE: CASE EVENT DATE: 20240601
